FAERS Safety Report 6139968-4 (Version None)
Quarter: 2009Q2

REPORT INFORMATION
  Report Type: 
  Country: None (occurrence: None)
  Receive Date: 20090401
  Receipt Date: 20090325
  Transmission Date: 20091009
  Serious: Yes (Other)
  Sender: FDA-Public Use
  Company Number: JP-ASTRAZENECA-2009AP01811

PATIENT
  Age: 37 Year
  Sex: Female

DRUGS (4)
  1. CRESTOR [Suspect]
     Indication: HYPERCHOLESTEROLAEMIA
     Route: 048
     Dates: start: 20061219, end: 20090227
  2. CRESTOR [Suspect]
     Route: 048
     Dates: start: 20090306
  3. LOXONIN [Concomitant]
     Indication: HEADACHE
     Route: 065
     Dates: start: 20050902, end: 20090227
  4. TERNELIN [Concomitant]
     Indication: CERVICOBRACHIAL SYNDROME
     Route: 048
     Dates: start: 20040927, end: 20090227

REACTIONS (2)
  - ABORTION SPONTANEOUS [None]
  - DRUG EXPOSURE DURING PREGNANCY [None]
